FAERS Safety Report 25702356 (Version 4)
Quarter: 2025Q4

REPORT INFORMATION
  Report Type: Spontaneous
  Country: CN (occurrence: CN)
  Receive Date: 20250819
  Receipt Date: 20251216
  Transmission Date: 20260118
  Serious: Yes (Hospitalization, Other)
  Sender: NOVARTIS
  Company Number: CN-002147023-NVSC2025CN128961

PATIENT
  Age: 41 Year
  Sex: Male

DRUGS (13)
  1. SIMULECT [Suspect]
     Active Substance: BASILIXIMAB
     Indication: Prophylaxis against transplant rejection
     Dosage: UNK INDUCTION ON POST OPERATIVE DAYS 0 AND 4
     Route: 065
     Dates: start: 2023
  2. MYCOPHENOLATE SODIUM [Suspect]
     Active Substance: MYCOPHENOLATE SODIUM
     Indication: Prophylaxis against transplant rejection
     Dosage: 540 MG, BID
     Route: 065
     Dates: start: 202302
  3. MYCOPHENOLATE SODIUM [Suspect]
     Active Substance: MYCOPHENOLATE SODIUM
     Dosage: 180 MG, BID
     Route: 065
     Dates: start: 2023
  4. MYCOPHENOLATE SODIUM [Suspect]
     Active Substance: MYCOPHENOLATE SODIUM
     Dosage: UNK
     Route: 065
     Dates: start: 2023
  5. TACROLIMUS [Suspect]
     Active Substance: TACROLIMUS
     Indication: Prophylaxis against transplant rejection
     Dosage: 2.5 MG, BID
     Route: 065
     Dates: start: 202302
  6. TACROLIMUS [Suspect]
     Active Substance: TACROLIMUS
     Dosage: 3 MG, BID
     Route: 065
     Dates: start: 2023
  7. TACROLIMUS [Suspect]
     Active Substance: TACROLIMUS
     Dosage: 2.5 MG TWICE DAILY+ 0.5 MG FOUR TIMES DAILY
     Route: 065
     Dates: start: 2023
  8. PREDNISONE [Suspect]
     Active Substance: PREDNISONE
     Indication: Prophylaxis against transplant rejection
     Dosage: 15 MG, QD
     Route: 065
     Dates: start: 202302
  9. PREDNISONE [Suspect]
     Active Substance: PREDNISONE
     Dosage: 5 MG, QD
     Route: 065
     Dates: start: 2023
  10. PREDNISONE [Suspect]
     Active Substance: PREDNISONE
     Dosage: 15 MG, QD
     Route: 065
     Dates: start: 2023
  11. PREDNISONE [Suspect]
     Active Substance: PREDNISONE
     Dosage: 10 MG, QD
     Route: 065
     Dates: start: 2023
  12. PREDNISONE [Suspect]
     Active Substance: PREDNISONE
     Dosage: 5 MG, QD
     Route: 065
     Dates: start: 2023
  13. METHYLPREDNISOLONE [Suspect]
     Active Substance: METHYLPREDNISOLONE
     Indication: Prophylaxis against transplant rejection
     Dosage: 500 MG, QD
     Route: 042
     Dates: start: 2023

REACTIONS (2)
  - BK virus infection [Recovering/Resolving]
  - Ureteritis [Recovered/Resolved]

NARRATIVE: CASE EVENT DATE: 20230101
